FAERS Safety Report 16365559 (Version 1)
Quarter: 2019Q2

REPORT INFORMATION
  Report Type: Spontaneous
  Country: US (occurrence: US)
  Receive Date: 20190421
  Receipt Date: 20190421
  Transmission Date: 20190711
  Serious: No
  Sender: FDA-Public Use
  Company Number: None

PATIENT
  Age: 74 Year
  Sex: Male
  Weight: 104.33 kg

DRUGS (9)
  1. NEXIUM [Concomitant]
     Active Substance: ESOMEPRAZOLE MAGNESIUM
  2. ELIQUIS [Concomitant]
     Active Substance: APIXABAN
  3. LORSARTAN [Concomitant]
     Active Substance: LOSARTAN
  4. CQ10 [Concomitant]
     Active Substance: UBIDECARENONE
  5. HYDROXYZINE HCL 10 MG TABLET [Suspect]
     Active Substance: HYDROXYZINE HYDROCHLORIDE
     Indication: RASH
     Dosage: ?          QUANTITY:3-4 PILLS OF EACH SUPPLEM;?
     Route: 048
     Dates: start: 20190307, end: 20190315
  6. FINASTERIDE. [Concomitant]
     Active Substance: FINASTERIDE
  7. MULTI-VITAMIN [Concomitant]
     Active Substance: .ALPHA.-TOCOPHEROL ACETATE, DL-\ASCORBIC ACID\CYANOCOBALAMIN\FLUORIDE ION\FOLIC ACID\NIACIN\PYRIDOXINE\RIBOFLAVIN\THIAMINE\VITAMIN A\VITAMIN D
  8. ZETIA [Concomitant]
     Active Substance: EZETIMIBE
  9. SIMVASTIN [Concomitant]
     Active Substance: SIMVASTATIN

REACTIONS (3)
  - Pain in extremity [None]
  - Sleep disorder [None]
  - Burning sensation [None]

NARRATIVE: CASE EVENT DATE: 20190307
